FAERS Safety Report 6045363-9 (Version None)
Quarter: 2009Q1

REPORT INFORMATION
  Report Type: 
  Country: None (occurrence: None)
  Receive Date: 20090121
  Receipt Date: 20090115
  Transmission Date: 20090719
  Serious: Yes (Hospitalization)
  Sender: FDA-Public Use
  Company Number: US-ASTRAZENECA-2009UW01294

PATIENT
  Age: 14609 Day
  Sex: Male

DRUGS (2)
  1. NEXIUM [Suspect]
     Route: 048
     Dates: start: 20050701
  2. PRILOSEC [Suspect]
     Route: 048
     Dates: start: 20050701

REACTIONS (2)
  - DRUG INEFFECTIVE [None]
  - MYOCARDIAL INFARCTION [None]
